FAERS Safety Report 11397887 (Version 1)
Quarter: 2015Q3

REPORT INFORMATION
  Report Type: Spontaneous
  Country: US (occurrence: US)
  Receive Date: 20150819
  Receipt Date: 20150819
  Transmission Date: 20151125
  Serious: No
  Sender: FDA-Public Use
  Company Number: US-SHIRE-US201510534

PATIENT
  Age: 7 Year
  Sex: Male
  Weight: 23.95 kg

DRUGS (1)
  1. ELAPRASE [Suspect]
     Active Substance: IDURSULFASE
     Indication: MUCOPOLYSACCHARIDOSIS
     Dosage: 12 MG, UNKNOWN
     Route: 041

REACTIONS (2)
  - Wheezing [Unknown]
  - Pyrexia [Unknown]

NARRATIVE: CASE EVENT DATE: 20150813
